FAERS Safety Report 15473365 (Version 2)
Quarter: 2018Q4

REPORT INFORMATION
  Report Type: Spontaneous
  Country: AR (occurrence: AR)
  Receive Date: 20181008
  Receipt Date: 20181017
  Transmission Date: 20190205
  Serious: Yes (Hospitalization, Other)
  Sender: FDA-Public Use
  Company Number: AR-009507513-1810ARG001949

PATIENT
  Age: 50 Year
  Sex: Male

DRUGS (1)
  1. KEYTRUDA [Suspect]
     Active Substance: PEMBROLIZUMAB
     Indication: NON-SMALL CELL LUNG CANCER
     Dosage: UNK. THE PATIENT HAD RECEIVED 9 CYCLES
     Dates: start: 201710

REACTIONS (5)
  - Inappropriate schedule of product administration [Unknown]
  - Therapy partial responder [Unknown]
  - Respiratory distress [Recovered/Resolved]
  - Pneumonitis [Recovered/Resolved]
  - Product availability issue [Unknown]

NARRATIVE: CASE EVENT DATE: 201809
